FAERS Safety Report 5301952-8 (Version None)
Quarter: 2007Q2

REPORT INFORMATION
  Report Type: 
  Country: None (occurrence: None)
  Receive Date: 20070419
  Receipt Date: 20070405
  Transmission Date: 20071010
  Serious: Yes (Congenital Anomaly, Other)
  Sender: FDA-Public Use
  Company Number: US-AMGEN-US161442

PATIENT
  Sex: Male

DRUGS (41)
  1. ENBREL [Suspect]
     Indication: RHEUMATOID ARTHRITIS
     Route: 064
     Dates: start: 20040401
  2. VITAMINS [Concomitant]
     Route: 064
     Dates: start: 20050505
  3. CALCIUM [Concomitant]
     Route: 064
     Dates: start: 20050519
  4. POTASSIUM ACETATE [Concomitant]
     Route: 064
     Dates: end: 20050805
  5. POTASSIUM ACETATE [Concomitant]
     Dates: start: 20051124
  6. PREDNISONE TAB [Concomitant]
     Route: 064
  7. LEFLUNOMIDE [Concomitant]
     Route: 064
     Dates: end: 20050505
  8. FLEXERIL [Concomitant]
     Route: 064
     Dates: start: 20050423, end: 20050423
  9. SOMA [Concomitant]
     Route: 064
     Dates: start: 20050430, end: 20050430
  10. DARVOCET-N 100 [Concomitant]
     Route: 064
     Dates: start: 20050409, end: 20050419
  11. DARVOCET-N 100 [Concomitant]
     Dates: start: 20050729, end: 20050805
  12. SINGULAIR [Concomitant]
     Route: 064
     Dates: end: 20050505
  13. ALBUTEROL [Concomitant]
     Route: 064
     Dates: end: 20050517
  14. PULMICORT [Concomitant]
     Route: 064
     Dates: start: 20050510, end: 20050524
  15. PULMICORT [Concomitant]
     Dates: start: 20050704, end: 20050704
  16. PULMICORT [Concomitant]
     Dates: start: 20051202, end: 20051208
  17. LEVAQUIN [Concomitant]
     Route: 064
     Dates: start: 20050427, end: 20050430
  18. ACIPHEX [Concomitant]
     Route: 064
     Dates: end: 20050505
  19. ACIPHEX [Concomitant]
     Dates: start: 20051124
  20. NYSTATIN [Concomitant]
     Route: 064
     Dates: end: 20050505
  21. ZYBAN [Concomitant]
     Route: 064
     Dates: start: 20050401, end: 20050410
  22. CELESTONE [Concomitant]
     Route: 064
     Dates: start: 20050608, end: 20050608
  23. CELESTONE [Concomitant]
     Dates: start: 20051121, end: 20051121
  24. KEFLEX [Concomitant]
     Route: 064
     Dates: start: 20050729, end: 20050807
  25. ZYRTEC [Concomitant]
     Route: 064
     Dates: start: 20050601, end: 20050715
  26. MEPERIDINE HYDROCHLORIDE [Concomitant]
     Route: 064
     Dates: start: 20051117
  27. MOTRIN [Concomitant]
     Route: 064
     Dates: start: 20050409, end: 20050419
  28. MOTRIN [Concomitant]
     Dates: start: 20050516, end: 20050707
  29. ALEVE [Concomitant]
     Route: 064
     Dates: end: 20050505
  30. BENADRYL [Concomitant]
     Route: 064
     Dates: start: 20050415, end: 20050426
  31. BENADRYL [Concomitant]
     Dates: start: 20051201, end: 20051208
  32. TYLENOL SINUS MEDICATION [Concomitant]
     Route: 064
     Dates: start: 20050418, end: 20050426
  33. MONISTAT [Concomitant]
     Route: 064
     Dates: start: 20050501, end: 20050503
  34. PEPCID [Concomitant]
     Route: 064
     Dates: start: 20050509
  35. TYLENOL [Concomitant]
     Route: 064
     Dates: start: 20050707, end: 20050930
  36. TYLENOL [Concomitant]
     Dates: start: 20051203
  37. TUMS [Concomitant]
     Route: 064
     Dates: start: 20050715, end: 20050901
  38. MAALOX FAST BLOCKER [Concomitant]
     Route: 064
     Dates: start: 20051001
  39. CHOLESTYRAMINE [Concomitant]
     Route: 064
     Dates: start: 20050501, end: 20050501
  40. CHOLESTYRAMINE [Concomitant]
     Dates: start: 20050506, end: 20050516
  41. HYDROCHLOROTHIAZIDE [Concomitant]
     Dates: end: 20050505

REACTIONS (4)
  - CONGENITAL CYSTIC KIDNEY DISEASE [None]
  - HYDRONEPHROSIS [None]
  - PELVI-URETERIC OBSTRUCTION [None]
  - SINGLE FUNCTIONAL KIDNEY [None]
